FAERS Safety Report 5775888-2 (Version None)
Quarter: 2008Q2

REPORT INFORMATION
  Report Type: 
  Country: None (occurrence: None)
  Receive Date: 20080617
  Receipt Date: 20080604
  Transmission Date: 20081010
  Serious: Yes (Other)
  Sender: FDA-Public Use
  Company Number: GB-ELI_LILLY_AND_COMPANY-GB200806001125

PATIENT
  Age: 34 Year
  Sex: Female

DRUGS (2)
  1. PROZAC [Suspect]
     Indication: EATING DISORDER
     Dosage: 60 MG, UNK
     Route: 048
  2. PROZAC [Suspect]
     Dosage: 40 MG, UNK
     Route: 048

REACTIONS (3)
  - ABORTION LATE [None]
  - DRUG EXPOSURE DURING PREGNANCY [None]
  - NAUSEA [None]
